FAERS Safety Report 8379752-4 (Version None)
Quarter: 2012Q2

REPORT INFORMATION
  Report Type: 
  Country: None (occurrence: None)
  Receive Date: 20120523
  Receipt Date: 20120521
  Transmission Date: 20120825
  Serious: Yes (Other)
  Sender: FDA-Public Use
  Company Number: DE-SANOFI-AVENTIS-2012SA035602

PATIENT
  Age: 71 Year
  Sex: Male
  Weight: 94 kg

DRUGS (5)
  1. AMLODIPINE/VALSARTAN [Concomitant]
     Indication: HYPERTENSION
     Dosage: 1 X1/2
     Route: 048
  2. MULTAQ [Suspect]
     Indication: ATRIAL FIBRILLATION
     Dosage: 2 X1/2
     Route: 048
     Dates: start: 20110201, end: 20110825
  3. METOPROLOL SUCCINATE [Concomitant]
     Dosage: 1 X1.5
     Route: 048
  4. FUROSEMIDE [Concomitant]
     Dosage: 1 X1/2
     Route: 048
  5. MARCUMAR [Concomitant]
     Indication: ATRIAL FIBRILLATION
     Route: 048
     Dates: start: 20100701

REACTIONS (7)
  - HEPATIC ENZYME INCREASED [None]
  - DECREASED APPETITE [None]
  - GAMMA-GLUTAMYLTRANSFERASE INCREASED [None]
  - ASPARTATE AMINOTRANSFERASE INCREASED [None]
  - GENERAL PHYSICAL HEALTH DETERIORATION [None]
  - ALANINE AMINOTRANSFERASE INCREASED [None]
  - NAUSEA [None]
